FAERS Safety Report 5386742-2 (Version None)
Quarter: 2007Q3

REPORT INFORMATION
  Report Type: 
  Country: None (occurrence: None)
  Receive Date: 20070713
  Receipt Date: 20070704
  Transmission Date: 20080115
  Serious: Yes (Other)
  Sender: FDA-Public Use
  Company Number: US-PFIZER INC-2007054595

PATIENT
  Sex: Male
  Weight: 61.363 kg

DRUGS (2)
  1. CHANTIX [Suspect]
     Indication: SMOKING CESSATION THERAPY
     Dosage: TEXT:EVERY DAY
     Dates: start: 20070501, end: 20070704
  2. PREMARIN [Concomitant]

REACTIONS (7)
  - BLOOD PRESSURE INCREASED [None]
  - BRADYPHRENIA [None]
  - HEADACHE [None]
  - MUSCLE SPASMS [None]
  - MUSCULAR WEAKNESS [None]
  - SPEECH DISORDER [None]
  - TREMOR [None]
